FAERS Safety Report 6451432-1 (Version None)
Quarter: 2009Q4

REPORT INFORMATION
  Report Type: 
  Country: None (occurrence: None)
  Receive Date: 20091123
  Receipt Date: 20081003
  Transmission Date: 20100525
  Serious: No
  Sender: FDA-Public Use
  Company Number: US-BRISTOL-MYERS SQUIBB COMPANY-14360275

PATIENT
  Age: 72 Year
  Sex: Female

DRUGS (6)
  1. AVALIDE [Suspect]
     Indication: HYPERTENSION
     Dosage: 1 DOSAGE FORM = 1 TABLET
     Dates: start: 20050101, end: 20080923
  2. TRICOR [Concomitant]
  3. ZETIA [Concomitant]
  4. ALLOPURINOL [Concomitant]
  5. ASPIRIN [Concomitant]
  6. AVAPRO [Concomitant]

REACTIONS (1)
  - BLOOD CALCIUM INCREASED [None]
